FAERS Safety Report 9360541 (Version 1)
Quarter: 2013Q2

REPORT INFORMATION
  Report Type: Spontaneous
  Country: US (occurrence: None)
  Receive Date: 20130620
  Receipt Date: 20130620
  Transmission Date: 20140414
  Serious: Yes (Hospitalization)
  Sender: FDA-Public Use
  Company Number: None

PATIENT
  Age: 78 Year
  Sex: Male
  Weight: 77 kg

DRUGS (7)
  1. 4-AMINOPYRIDINE [Suspect]
     Indication: MULTIPLE SCLEROSIS
     Dosage: QID  PRN
     Route: 048
     Dates: start: 20130610, end: 20130610
  2. SIMVASTATIN [Concomitant]
  3. LEVOTHYROXINE [Concomitant]
  4. DITROPAN XL [Concomitant]
  5. OXYBUTYNIN [Concomitant]
  6. FLOMAX [Concomitant]
  7. TAMSULOSIN [Concomitant]

REACTIONS (7)
  - Mental status changes [None]
  - Dizziness [None]
  - Agitation [None]
  - Eye movement disorder [None]
  - Nystagmus [None]
  - Product quality issue [None]
  - Drug effect decreased [None]
